FAERS Safety Report 9183319 (Version 1)
Quarter: 2012Q4

REPORT INFORMATION
  Report Type: 
  Country: US (occurrence: US)
  Receive Date: 20121030
  Receipt Date: 20121030
  Transmission Date: 20130627
  Serious: Yes (Death)
  Sender: FDA-Public Use
  Company Number: PHEH2012US021066

PATIENT
  Age: 75 None
  Sex: Male
  Weight: 69.39 kg

DRUGS (1)
  1. EXJADE [Suspect]
     Indication: IRON OVERLOAD
     Dosage: 2500 mg, daily
     Route: 048
     Dates: start: 20120514

REACTIONS (1)
  - Death [Fatal]
